FAERS Safety Report 9306882 (Version 5)
Quarter: 2013Q2

REPORT INFORMATION
  Report Type: Spontaneous
  Country: US (occurrence: None)
  Receive Date: 20130308
  Receipt Date: 20130426
  Transmission Date: 20140414
  Serious: Yes (Other)
  Sender: FDA-Public Use
  Company Number: ACO_34631_2013

PATIENT
  Sex: Female

DRUGS (7)
  1. AMPYRA [Suspect]
     Indication: MULTIPLE SCLEROSIS
     Route: 048
     Dates: start: 201006, end: 20130204
  2. AVONEX (INTERFERON BETA-1A) [Concomitant]
  3. AMANTADINE (AMANTADINE HYDROCHLORIDE) [Concomitant]
  4. DIOVAN HCT (HYDROCHLOROTHIAZIDE, VALSARTAN) [Concomitant]
  5. METOPROLOL (METOPROLOL TARTRATE) [Concomitant]
  6. OMEPRAZOLE (OMEPRAZOLE) [Concomitant]
  7. SYNTHROID (LEVOTHYROXINE SODIUM) [Concomitant]

REACTIONS (4)
  - Renal impairment [None]
  - Adverse drug reaction [None]
  - Renal impairment [None]
  - Weight increased [None]
